FAERS Safety Report 17408127 (Version 4)
Quarter: 2020Q4

REPORT INFORMATION
  Report Type: Spontaneous
  Country: US (occurrence: US)
  Receive Date: 20200212
  Receipt Date: 20201019
  Transmission Date: 20210113
  Serious: Yes (Hospitalization, Other)
  Sender: FDA-Public Use
  Company Number: US-GILEAD-2020-0450627

PATIENT
  Age: 52 Year
  Sex: Male

DRUGS (100)
  1. HYDROCODONE/ACETAMINOPHEN [Concomitant]
     Active Substance: ACETAMINOPHEN\HYDROCODONE
  2. LORAZEPAM. [Concomitant]
     Active Substance: LORAZEPAM
  3. TIVICAY [Concomitant]
     Active Substance: DOLUTEGRAVIR SODIUM
  4. FUROSEMIDE. [Concomitant]
     Active Substance: FUROSEMIDE
  5. OFLOXACIN. [Concomitant]
     Active Substance: OFLOXACIN
  6. KALETRA [Suspect]
     Active Substance: LOPINAVIR\RITONAVIR
     Indication: HIV INFECTION
     Route: 065
  7. ZIAGEN [Concomitant]
     Active Substance: ABACAVIR SULFATE
  8. KLOR-CON [Concomitant]
     Active Substance: POTASSIUM CHLORIDE
  9. AZITHROMYCIN ANHYDROUS. [Concomitant]
     Active Substance: AZITHROMYCIN ANHYDROUS
  10. ORAVIG [Concomitant]
     Active Substance: MICONAZOLE
  11. KENALOG [Concomitant]
     Active Substance: TRIAMCINOLONE ACETONIDE
  12. DIAZEPAM. [Concomitant]
     Active Substance: DIAZEPAM
  13. HYDROXYZINE HCL [Concomitant]
     Active Substance: HYDROXYZINE HYDROCHLORIDE
  14. CLOBETASOL PROPIONATE. [Concomitant]
     Active Substance: CLOBETASOL PROPIONATE
  15. VITAMIN B1 [Concomitant]
     Active Substance: THIAMINE HYDROCHLORIDE
  16. INSULIN [Concomitant]
     Active Substance: INSULIN NOS
  17. LISINOPRIL. [Concomitant]
     Active Substance: LISINOPRIL
  18. MAG G [Concomitant]
     Active Substance: MAGNESIUM GLUCONATE
  19. PROMETHAZINE [Concomitant]
     Active Substance: PROMETHAZINE HYDROCHLORIDE
  20. VITAMIN B6 [Concomitant]
     Active Substance: PYRIDOXINE HYDROCHLORIDE
  21. CONDYLOX [Concomitant]
     Active Substance: PODOFILOX
  22. ESOMEPRAZOLE MAGNESIUM. [Concomitant]
     Active Substance: ESOMEPRAZOLE MAGNESIUM
  23. TRIAMCINOLONE [Concomitant]
     Active Substance: TRIAMCINOLONE
  24. CLINDAMYCIN. [Concomitant]
     Active Substance: CLINDAMYCIN
  25. PROVENTIL HFA [Concomitant]
     Active Substance: ALBUTEROL SULFATE
  26. DOXYCYCLINE HYCLATE. [Concomitant]
     Active Substance: DOXYCYCLINE HYCLATE
  27. CYCLOPHOSPHAMIDE. [Concomitant]
     Active Substance: CYCLOPHOSPHAMIDE
  28. PROTONIX [Concomitant]
     Active Substance: PANTOPRAZOLE SODIUM
  29. VIREAD [Suspect]
     Active Substance: TENOFOVIR DISOPROXIL FUMARATE
     Indication: HIV INFECTION
     Dosage: UNK
     Route: 048
     Dates: start: 2001, end: 201801
  30. KETOCONAZOLE. [Concomitant]
     Active Substance: KETOCONAZOLE
  31. ONDANSETRON [Concomitant]
     Active Substance: ONDANSETRON
  32. LEVETIRACETAM. [Concomitant]
     Active Substance: LEVETIRACETAM
  33. NYSTATIN. [Concomitant]
     Active Substance: NYSTATIN
  34. FLUCONAZOLE. [Concomitant]
     Active Substance: FLUCONAZOLE
  35. BACTROBAN [Concomitant]
     Active Substance: MUPIROCIN\MUPIROCIN CALCIUM
  36. METOPROLOL. [Concomitant]
     Active Substance: METOPROLOL
  37. FEXOFENADINE [Concomitant]
     Active Substance: FEXOFENADINE HYDROCHLORIDE
  38. ANUCORT-HC [Concomitant]
     Active Substance: HYDROCORTISONE ACETATE
  39. ACEPHEN [PARACETAMOL] [Concomitant]
  40. LOPERAMIDE [Concomitant]
     Active Substance: LOPERAMIDE
  41. HYDROCORTISONE VALERATE. [Concomitant]
     Active Substance: HYDROCORTISONE VALERATE
  42. FLUOCINONIDE. [Concomitant]
     Active Substance: FLUOCINONIDE
  43. FENTANYL. [Concomitant]
     Active Substance: FENTANYL
  44. MUCUS RELIEF [Concomitant]
     Active Substance: GUAIFENESIN
  45. AMCINONIDE. [Concomitant]
     Active Substance: AMCINONIDE
  46. PREDNISONE. [Concomitant]
     Active Substance: PREDNISONE
  47. GABAPENTIN. [Concomitant]
     Active Substance: GABAPENTIN
  48. DOXEPIN [Concomitant]
     Active Substance: DOXEPIN
  49. WAL FEX [Concomitant]
     Active Substance: FEXOFENADINE HYDROCHLORIDE
  50. FOLIC ACID. [Concomitant]
     Active Substance: FOLIC ACID
  51. PROMETHEGAN [Concomitant]
     Active Substance: PROMETHAZINE HYDROCHLORIDE
  52. ALPRAZOLAM. [Concomitant]
     Active Substance: ALPRAZOLAM
  53. PROAIR HFA [Concomitant]
     Active Substance: ALBUTEROL SULFATE
  54. TACROLIMUS. [Concomitant]
     Active Substance: TACROLIMUS
  55. DESCOVY [Concomitant]
     Active Substance: EMTRICITABINE\TENOFOVIR ALAFENAMIDE FUMARATE
  56. ATENOLOL. [Concomitant]
     Active Substance: ATENOLOL
  57. TERBINAFINE. [Concomitant]
     Active Substance: TERBINAFINE
  58. ZOLPIDEM [Concomitant]
     Active Substance: ZOLPIDEM TARTRATE
  59. AMOXICILLIN. [Concomitant]
     Active Substance: AMOXICILLIN
  60. MEGACE [Concomitant]
     Active Substance: MEGESTROL ACETATE
  61. LEVOFLOXACIN. [Concomitant]
     Active Substance: LEVOFLOXACIN
  62. CIPROFLOXACIN. [Concomitant]
     Active Substance: CIPROFLOXACIN
  63. METRONIDAZOLE. [Concomitant]
     Active Substance: METRONIDAZOLE
  64. OMEPRAZOLE. [Concomitant]
     Active Substance: OMEPRAZOLE
  65. CETIRIZINE [Concomitant]
     Active Substance: CETIRIZINE HYDROCHLORIDE
  66. HALOBETASOL [Concomitant]
     Active Substance: HALOBETASOL PROPIONATE
  67. TRAZODONE [Concomitant]
     Active Substance: TRAZODONE HYDROCHLORIDE
  68. CALCIPOTRIENE. [Concomitant]
     Active Substance: CALCIPOTRIENE
  69. TENOFOVIR [Suspect]
     Active Substance: TENOFOVIR
     Indication: HIV INFECTION
     Dosage: UNK
     Route: 065
     Dates: start: 201803, end: 20180621
  70. VERAMYST [Concomitant]
     Active Substance: FLUTICASONE FUROATE
  71. MORPHINE SULFATE. [Concomitant]
     Active Substance: MORPHINE SULFATE
  72. MUPIROCIN. [Concomitant]
     Active Substance: MUPIROCIN
  73. AVELOX [Concomitant]
     Active Substance: MOXIFLOXACIN HYDROCHLORIDE
  74. CLOTRIMAZOLE AND BETAMETHASONE [Concomitant]
     Active Substance: BETAMETHASONE\CLOTRIMAZOLE
  75. ESCITALOPRAM [Concomitant]
     Active Substance: ESCITALOPRAM OXALATE
  76. LEXAPRO [Concomitant]
     Active Substance: ESCITALOPRAM OXALATE
  77. ALLEGRA [Concomitant]
     Active Substance: FEXOFENADINE HYDROCHLORIDE
  78. CEPHALEXIN [CEFALEXIN] [Concomitant]
     Active Substance: CEPHALEXIN
  79. MOXIFLOXACIN. [Concomitant]
     Active Substance: MOXIFLOXACIN
  80. AMMONIUM LACTATE. [Concomitant]
     Active Substance: AMMONIUM LACTATE
  81. ELIQUIS [Concomitant]
     Active Substance: APIXABAN
  82. TENOFOVIR TEVA [TENOFOVIR DISOPROXIL FUMARATE] [Suspect]
     Active Substance: TENOFOVIR DISOPROXIL FUMARATE
     Indication: HIV INFECTION
     Dosage: UNK
     Route: 065
     Dates: start: 201801
  83. IMIQUIMOD. [Concomitant]
     Active Substance: IMIQUIMOD
  84. BISACODYL. [Concomitant]
     Active Substance: BISACODYL
  85. PROPRANOLOL [Concomitant]
     Active Substance: PROPRANOLOL HYDROCHLORIDE
  86. AMOXI CLAV [Concomitant]
     Active Substance: AMOXICILLIN\CLAVULANATE POTASSIUM
  87. ENSURE ACTIVE HIGH PROTEIN [Concomitant]
  88. FLUOXETINE [Concomitant]
     Active Substance: FLUOXETINE HYDROCHLORIDE
  89. METHYLPREDNISOLONE. [Concomitant]
     Active Substance: METHYLPREDNISOLONE
  90. AMLODIPINE BESYLATE. [Concomitant]
     Active Substance: AMLODIPINE BESYLATE
  91. CALCITRIOL. [Concomitant]
     Active Substance: CALCITRIOL
  92. NEXIUM I.V. [Concomitant]
     Active Substance: ESOMEPRAZOLE SODIUM
  93. CLOTRIMAZOLE. [Concomitant]
     Active Substance: CLOTRIMAZOLE
  94. PHENADOZ [Concomitant]
     Active Substance: PROMETHAZINE HYDROCHLORIDE
  95. CHLORHEXIDINE [Concomitant]
     Active Substance: CHLORHEXIDINE
  96. SERTRALINE [Concomitant]
     Active Substance: SERTRALINE HYDROCHLORIDE
  97. DAPSONE. [Concomitant]
     Active Substance: DAPSONE
  98. POTASSIUM CHLORIDE. [Concomitant]
     Active Substance: POTASSIUM CHLORIDE
  99. ABACAVIR. [Concomitant]
     Active Substance: ABACAVIR
  100. SULFAMETH/TRIMETH [Concomitant]
     Active Substance: SULFAMETHOXAZOLE\TRIMETHOPRIM

REACTIONS (11)
  - Emotional distress [Unknown]
  - Anti-neutrophil cytoplasmic antibody positive vasculitis [Unknown]
  - Renal failure [Not Recovered/Not Resolved]
  - Renal tubular acidosis [Unknown]
  - Acute kidney injury [Unknown]
  - Bone metabolism disorder [Not Recovered/Not Resolved]
  - Anxiety [Unknown]
  - Anhedonia [Unknown]
  - Chronic kidney disease [Not Recovered/Not Resolved]
  - Economic problem [Unknown]
  - Pain [Unknown]

NARRATIVE: CASE EVENT DATE: 20100319
